FAERS Safety Report 25153733 (Version 1)
Quarter: 2025Q2

REPORT INFORMATION
  Report Type: Spontaneous
  Country: US (occurrence: US)
  Receive Date: 20250403
  Receipt Date: 20250403
  Transmission Date: 20250716
  Serious: Yes (Other)
  Sender: GERON CORP
  Company Number: US-GERON CORPORATION-US-GER-25-000031

PATIENT

DRUGS (1)
  1. RYTELO [Suspect]
     Active Substance: IMETELSTAT SODIUM
     Indication: Product used for unknown indication

REACTIONS (1)
  - Neutrophil count decreased [Unknown]
